FAERS Safety Report 4399410-0 (Version None)
Quarter: 2004Q3

REPORT INFORMATION
  Report Type: 
  Country: None (occurrence: None)
  Receive Date: 20040716
  Receipt Date: 20040630
  Transmission Date: 20050211
  Serious: Yes (Hospitalization, Other)
  Sender: FDA-Public Use
  Company Number: US-AMGEN-US082025

PATIENT
  Age: 50 Year

DRUGS (3)
  1. EPOGEN [Suspect]
     Indication: DIALYSIS
  2. LINEZOLID [Suspect]
  3. BLOOD CELLS, PACKED HUMAN [Concomitant]

REACTIONS (5)
  - BACTERAEMIA [None]
  - BONE MARROW DEPRESSION [None]
  - ERYTHEMA INFECTIOSUM [None]
  - PANCYTOPENIA [None]
  - THERAPEUTIC RESPONSE DECREASED [None]
